FAERS Safety Report 17881403 (Version 1)
Quarter: 2020Q2

REPORT INFORMATION
  Report Type: Other
  Country: US (occurrence: US)
  Receive Date: 20200610
  Receipt Date: 20200610
  Transmission Date: 20200714
  Serious: No
  Sender: FDA-Public Use
  Company Number: US-COLLEGIUM PHARMACEUTICAL, INC.-2019CGM00155

PATIENT
  Sex: Male

DRUGS (2)
  1. UNSPECIFIED HIV MEDICATIONS [Concomitant]
  2. XTAMPZA ER [Suspect]
     Active Substance: OXYCODONE
     Indication: CHEST PAIN
     Dosage: 36 MG, 2X/DAY

REACTIONS (3)
  - Product substitution issue [Recovered/Resolved]
  - Anxiety [Recovered/Resolved]
  - Hallucination, visual [Recovered/Resolved]
